FAERS Safety Report 4973075-9 (Version None)
Quarter: 2006Q2

REPORT INFORMATION
  Report Type: 
  Country: None (occurrence: None)
  Receive Date: 20060414
  Receipt Date: 20060405
  Transmission Date: 20061013
  Serious: Yes (Death)
  Sender: FDA-Public Use
  Company Number: NL-ROCHE-443080

PATIENT
  Age: 63 Year
  Sex: Male

DRUGS (2)
  1. MYCOPHENOLATE MOFETIL [Suspect]
     Route: 048
     Dates: start: 20030725, end: 20060104
  2. FK506 [Suspect]
     Route: 048
     Dates: start: 20030725, end: 20060104

REACTIONS (3)
  - CARDIAC FAILURE [None]
  - OPERATIVE HAEMORRHAGE [None]
  - THORACOTOMY [None]
